FAERS Safety Report 4597246-9 (Version None)
Quarter: 2005Q1

REPORT INFORMATION
  Report Type: 
  Country: None (occurrence: None)
  Receive Date: 20050301
  Receipt Date: 20050215
  Transmission Date: 20050727
  Serious: Yes (Hospitalization)
  Sender: FDA-Public Use
  Company Number: 2005-00575

PATIENT
  Age: 83 Year
  Sex: Female

DRUGS (5)
  1. TRAMADOL HCL [Suspect]
     Dates: start: 20041129, end: 20041230
  2. CAPTOPRIL W/HYDROCHLOROTHIAZIDE (HYDROCHLOROTHIAZIDE, CAPTOPRIL) [Suspect]
  3. COVERSYL (PERINDOPRIL) [Suspect]
     Dates: end: 20041230
  4. FLUCONAZOLE [Suspect]
     Dates: end: 20041230
  5. ATORVASTATIN CALCIUM [Suspect]
     Dates: end: 20041225

REACTIONS (2)
  - HYPERKALAEMIA [None]
  - HYPONATRAEMIA [None]
